FAERS Safety Report 5712804-3 (Version None)
Quarter: 2008Q2

REPORT INFORMATION
  Report Type: 
  Country: None (occurrence: None)
  Receive Date: 20080418
  Receipt Date: 20080411
  Transmission Date: 20081010
  Serious: Yes (Hospitalization)
  Sender: FDA-Public Use
  Company Number: 2008TJ0080

PATIENT
  Age: 54 Year
  Sex: Male

DRUGS (11)
  1. TWINJECT (EPINEPHRINE) 0.3 MG [Suspect]
     Indication: ANAPHYLACTIC REACTION
     Dosage: 0.3 MG PRN, SUBCUTANEOUS/INTRAMUSCULAR
     Dates: start: 20080408
  2. FOLIC ACID [Concomitant]
  3. AVALIDE (IRBESARTAN-HYDROCHLORIDE) [Concomitant]
  4. FUCIDIN CREAM (FUCIDIC ACID, SODIUM FUCIDATE) [Concomitant]
  5. PROCTOSEDYL (HYDROCORTISONE-FRAMYCETIN-DIBUCAINE-ESCULIN) [Concomitant]
  6. FUROSEMIDE [Concomitant]
  7. IRON [Concomitant]
  8. BUSCOPAN (HYOSCINE-N-BUTYLBROMIDE) [Concomitant]
  9. CELEXA [Concomitant]
  10. POTASSIUM CHLORIDE [Concomitant]
  11. OMEPRAZOLE [Concomitant]

REACTIONS (1)
  - DEVICE FAILURE [None]
